FAERS Safety Report 5723076-8 (Version None)
Quarter: 2008Q2

REPORT INFORMATION
  Report Type: 
  Country: None (occurrence: None)
  Receive Date: 20080430
  Receipt Date: 20080422
  Transmission Date: 20081010
  Serious: Yes (Hospitalization)
  Sender: FDA-Public Use
  Company Number: US-WYE-H03722608

PATIENT
  Sex: Male
  Weight: 66.74 kg

DRUGS (9)
  1. TORISEL [Suspect]
     Indication: RENAL CELL CARCINOMA
     Route: 042
     Dates: start: 20080111, end: 20080411
  2. LUNESTA [Concomitant]
     Indication: INSOMNIA
     Dosage: NOT SPECIFIED
  3. VICODIN [Concomitant]
     Indication: PAIN
     Dosage: NOT SPECIFIED
  4. ZOMETA [Concomitant]
     Indication: METASTASES TO BONE
     Dosage: NOT SPECIFIED
  5. TAGAMET [Concomitant]
     Dosage: NOT SPECIFIED
  6. COMPAZINE [Concomitant]
     Indication: NAUSEA
     Dosage: NOT SPECIFIED
  7. LIPITOR [Concomitant]
     Indication: BLOOD CHOLESTEROL INCREASED
     Dosage: NOT SPECIFIED
  8. NAPROSYN [Concomitant]
     Indication: BONE PAIN
     Dosage: NOT SPECIFIED
  9. NAPROSYN [Concomitant]
     Indication: DISCOMFORT

REACTIONS (3)
  - ACUTE MYOCARDIAL INFARCTION [None]
  - CARDIAC FAILURE CONGESTIVE [None]
  - RESPIRATORY FAILURE [None]
